FAERS Safety Report 16836010 (Version 2)
Quarter: 2019Q3

REPORT INFORMATION
  Report Type: Spontaneous
  Country: CA (occurrence: CA)
  Receive Date: 20190920
  Receipt Date: 20190926
  Transmission Date: 20191005
  Serious: Yes (Other)
  Sender: FDA-Public Use
  Company Number: CA-BAXTER-2019BAX018244

PATIENT
  Age: 50 Year
  Sex: Male

DRUGS (6)
  1. ROPIVACAINE. [Suspect]
     Active Substance: ROPIVACAINE HYDROCHLORIDE
     Indication: NERVE BLOCK
     Dosage: INITIAL BOLUS
     Route: 065
     Dates: start: 20190911, end: 20190911
  2. ROPIVACAINE. [Suspect]
     Active Substance: ROPIVACAINE HYDROCHLORIDE
     Dosage: DILUTED IN NS, DOSE REINTRODUCED
     Route: 065
     Dates: start: 201909
  3. 0.9% SODIUM CHLORIDE INJECTION [Suspect]
     Active Substance: SODIUM CHLORIDE
     Dosage: DOSE REINTRODUCED
     Route: 065
     Dates: start: 201909
  4. 0.9% SODIUM CHLORIDE INJECTION [Suspect]
     Active Substance: SODIUM CHLORIDE
     Indication: MEDICATION DILUTION
     Dosage: INITIAL BOLUS
     Route: 065
     Dates: start: 20190911, end: 20190911
  5. 0.9% SODIUM CHLORIDE INJECTION [Suspect]
     Active Substance: SODIUM CHLORIDE
     Dosage: AT A RATE OF 7ML/HR (ELASTOMERIC INFUSION DEVICE) PERIPHERAL NERVE BLOCK
     Route: 065
     Dates: start: 20190911, end: 20190913
  6. ROPIVACAINE. [Suspect]
     Active Substance: ROPIVACAINE HYDROCHLORIDE
     Indication: PAIN MANAGEMENT
     Dosage: DILUTED IN NS, AT A RATE OF 7ML/HR (ELASTOMERIC INFUSION DEVICE) PERIPHERAL NERVE BLOCK
     Route: 065
     Dates: start: 20190911, end: 20190913

REACTIONS (1)
  - Horner^s syndrome [Recovered/Resolved]

NARRATIVE: CASE EVENT DATE: 20190911
